FAERS Safety Report 7665404-2 (Version None)
Quarter: 2011Q3

REPORT INFORMATION
  Report Type: 
  Country: None (occurrence: None)
  Receive Date: 20110806
  Receipt Date: 20110617
  Transmission Date: 20111222
  Serious: No
  Sender: FDA-Public Use
  Company Number: US-ABBOTT-11P-163-0733777-00

PATIENT
  Sex: Male
  Weight: 128.03 kg

DRUGS (12)
  1. POTASSIUM CHLORIDE [Concomitant]
     Indication: MINERAL SUPPLEMENTATION
  2. ZOCOR [Concomitant]
     Indication: BLOOD CHOLESTEROL INCREASED
  3. UNKNOWN EYE DROPS [Concomitant]
     Indication: GLAUCOMA
  4. METOPROLOL TARTRATE [Concomitant]
     Indication: HYPERTENSION
  5. UNKNOWN EYE DROPS [Concomitant]
     Indication: CATARACT
  6. AMIODARONE HCL [Concomitant]
     Indication: POSTOPERATIVE CARE
  7. FOLIC ACID [Concomitant]
     Indication: VITAMIN SUPPLEMENTATION
  8. FUROSEMIDE [Concomitant]
     Indication: DIURETIC THERAPY
  9. LANTUS [Concomitant]
     Indication: DIABETES MELLITUS
     Dosage: ACCORDING TO A SLIDING SCALE
  10. ASPIRIN [Concomitant]
     Indication: CARDIOVASCULAR EVENT PROPHYLAXIS
  11. NIASPAN [Suspect]
     Indication: BLOOD CHOLESTEROL INCREASED
     Dates: start: 20110401
  12. PLAVIX [Concomitant]
     Indication: PRODUCT USED FOR UNKNOWN INDICATION

REACTIONS (1)
  - FLUSHING [None]
